FAERS Safety Report 18540373 (Version 1)
Quarter: 2020Q4

REPORT INFORMATION
  Report Type: Spontaneous
  Country: CN (occurrence: CN)
  Receive Date: 20201124
  Receipt Date: 20201124
  Transmission Date: 20210114
  Serious: Yes (Other)
  Sender: FDA-Public Use
  Company Number: CN-PFIZER INC-2020455628

PATIENT
  Age: 81 Year
  Sex: Female
  Weight: 60 kg

DRUGS (2)
  1. LIPITOR [Suspect]
     Active Substance: ATORVASTATIN CALCIUM
     Indication: ARTERIOSCLEROSIS
     Dosage: 20 MG, 1X/DAY
     Route: 048
     Dates: start: 20201016, end: 20201017
  2. IOPAMIRO [Suspect]
     Active Substance: IOPAMIDOL
     Indication: ANGIOGRAM
     Dosage: 100 ML, 1X/DAY
     Route: 042
     Dates: start: 20201017, end: 20201017

REACTIONS (5)
  - Pruritus [Recovered/Resolved]
  - Urticaria [Recovered/Resolved]
  - Erythema [Recovered/Resolved]
  - Dermatitis allergic [Recovered/Resolved]
  - Papule [Recovered/Resolved]

NARRATIVE: CASE EVENT DATE: 20201018
